FAERS Safety Report 24224184 (Version 1)
Quarter: 2024Q3

REPORT INFORMATION
  Report Type: Other
  Country: US (occurrence: US)
  Receive Date: 20240819
  Receipt Date: 20240819
  Transmission Date: 20241017
  Serious: Yes (Other)
  Sender: B BRAUN
  Company Number: US-B.Braun Medical Inc.-2160597

PATIENT
  Age: 16 Year
  Sex: Male

DRUGS (1)
  1. ACETAMINOPHEN [Suspect]
     Active Substance: ACETAMINOPHEN

REACTIONS (4)
  - Alanine aminotransferase increased [Unknown]
  - Overdose [Unknown]
  - Coagulopathy [Unknown]
  - Aspartate aminotransferase increased [Unknown]
